FAERS Safety Report 21633562 (Version 4)
Quarter: 2023Q1

REPORT INFORMATION
  Report Type: Report from Study
  Country: AR (occurrence: AR)
  Receive Date: 20221123
  Receipt Date: 20230103
  Transmission Date: 20230417
  Serious: Yes (Other)
  Sender: FDA-Public Use
  Company Number: AR-ORPHANEU-2022005527

PATIENT

DRUGS (6)
  1. SIGNIFOR LAR [Suspect]
     Active Substance: PASIREOTIDE PAMOATE
     Indication: Acromegaly
     Dosage: 60 MILLIGRAM EVERY 28 DAYS
     Dates: start: 20220908, end: 202212
  2. PAXON [LOSARTAN POTASSIUM] [Concomitant]
     Indication: Hypertension
     Dosage: UNK
     Dates: start: 2011
  3. VENTIDE [BECLOMETASONE DIPROPIONATE;SALBUTAMOL] [Concomitant]
     Indication: Asthma
     Dosage: UNK
  4. LEVOTHYROXINE [Concomitant]
     Active Substance: LEVOTHYROXINE
     Indication: Hormone replacement therapy
     Dosage: 100 UG/125 UG (EVERY OTHER DAY), QOD
     Dates: start: 2011
  5. VILDAGLIPTIN [Concomitant]
     Active Substance: VILDAGLIPTIN
     Indication: Diabetes mellitus
     Route: 048
  6. METFORMIN [Concomitant]
     Active Substance: METFORMIN HYDROCHLORIDE
     Indication: Diabetes mellitus
     Route: 048

REACTIONS (10)
  - Blood glucose fluctuation [Not Recovered/Not Resolved]
  - Blood glucose increased [Recovering/Resolving]
  - Hyperglycaemia [Unknown]
  - Cystitis [Unknown]
  - Thirst [Recovered/Resolved]
  - Muscle spasms [Recovering/Resolving]
  - Muscle spasms [Recovered/Resolved]
  - Polyuria [Recovered/Resolved]
  - Weight decreased [Unknown]
  - Off label use [Recovered/Resolved]

NARRATIVE: CASE EVENT DATE: 20220101
